FAERS Safety Report 5934085-8 (Version None)
Quarter: 2008Q4

REPORT INFORMATION
  Report Type: 
  Country: None (occurrence: None)
  Receive Date: 20081029
  Receipt Date: 20081017
  Transmission Date: 20090506
  Serious: Yes (Hospitalization)
  Sender: FDA-Public Use
  Company Number: US-MERCK-0810USA04304

PATIENT
  Age: 60 Year
  Sex: Female

DRUGS (5)
  1. HYDRODIURIL [Suspect]
     Route: 048
  2. PROTONIX [Concomitant]
     Route: 048
  3. ZOCOR [Concomitant]
     Route: 048
  4. EFFEXOR XR [Concomitant]
     Route: 065
  5. LOVENOX [Concomitant]
     Indication: PROPHYLAXIS
     Route: 065

REACTIONS (6)
  - ADVERSE EVENT [None]
  - BLOOD POTASSIUM ABNORMAL [None]
  - CEREBROVASCULAR ACCIDENT [None]
  - CORONARY ARTERY DISEASE [None]
  - DEPRESSION [None]
  - SYNCOPE [None]
